FAERS Safety Report 9121341 (Version 1)
Quarter: 2013Q1

REPORT INFORMATION
  Report Type: Report from Study
  Country: AU (occurrence: AU)
  Receive Date: 20130225
  Receipt Date: 20130225
  Transmission Date: 20140127
  Serious: Yes (Other)
  Sender: FDA-Public Use
  Company Number: AU-ROCHE-1192046

PATIENT
  Age: 64 Year
  Sex: Female

DRUGS (8)
  1. ACTEMRA [Suspect]
     Indication: RHEUMATOID ARTHRITIS
     Route: 042
     Dates: start: 20130117
  2. OMEPRAZOLE [Concomitant]
     Route: 048
  3. OSTELIN [Concomitant]
     Indication: VITAMIN D
     Route: 048
  4. MAGMIN [Concomitant]
     Route: 065
  5. PANAMAX [Concomitant]
     Route: 065
  6. VENTOLIN [Concomitant]
     Indication: ASTHMA
  7. SYMBICORT [Concomitant]
     Indication: ASTHMA
     Route: 065
  8. PREDNISOLONE [Concomitant]
     Indication: RHEUMATOID ARTHRITIS
     Route: 048

REACTIONS (3)
  - Pain [Recovered/Resolved]
  - Vomiting [Recovered/Resolved]
  - Diarrhoea [Recovered/Resolved]
